FAERS Safety Report 16541272 (Version 1)
Quarter: 2019Q3

REPORT INFORMATION
  Report Type: Spontaneous
  Country: GB (occurrence: GB)
  Receive Date: 20190708
  Receipt Date: 20190708
  Transmission Date: 20191004
  Serious: Yes (Death)
  Sender: FDA-Public Use
  Company Number: GB-FRESENIUS KABI-FK201907458

PATIENT
  Weight: 2.79 kg

DRUGS (1)
  1. OCTREOTIDE INJECTION (MANUFACTURER UNKNOWN) [Suspect]
     Active Substance: OCTREOTIDE
     Indication: CHYLOTHORAX
     Dosage: 1-4 MCG/KG/HR
     Route: 041

REACTIONS (2)
  - Drug ineffective for unapproved indication [Fatal]
  - Product use issue [Fatal]
